FAERS Safety Report 5866826-2 (Version None)
Quarter: 2008Q3

REPORT INFORMATION
  Report Type: 
  Country: None (occurrence: None)
  Receive Date: 20080828
  Receipt Date: 20080828
  Transmission Date: 20090109
  Serious: Yes (Other)
  Sender: FDA-Public Use
  Company Number: None

PATIENT
  Sex: Female
  Weight: 54.4316 kg

DRUGS (1)
  1. XYLOCAINE W/ EPINEPHRENE [Suspect]
     Indication: CHALAZION
     Dosage: 0.4 CC   0.2 CC (ONE MIN LATER)
     Dates: start: 20080814

REACTIONS (2)
  - CATARACT [None]
  - PUPIL FIXED [None]
